FAERS Safety Report 6107378 (Version 13)
Quarter: 2013Q3

REPORT INFORMATION
  Report Type: Spontaneous
  Country: US (occurrence: US)
  Receive Date: 20060815
  Receipt Date: 20130719
  Transmission Date: 20140515
  Serious: Yes (Hospitalization, Other)
  Sender: FDA-Public Use
  Company Number: US-ROCHE-443548

PATIENT
  Age: 63 Year
  Sex: Female
  Weight: 66.7 kg

DRUGS (4)
  1. ACCUTANE [Suspect]
     Indication: PRODUCT USED FOR UNKNOWN INDICATION
     Route: 048
     Dates: start: 1993, end: 1994
  2. PREMARIN [Concomitant]
     Indication: MENOPAUSE
  3. LOPRESSOR [Concomitant]
     Indication: HYPERTENSION
  4. DOXEPIN [Concomitant]
     Indication: DEPRESSION

REACTIONS (18)
  - Diverticular perforation [Unknown]
  - Essential hypertension [Recovering/Resolving]
  - Irritable bowel syndrome [Unknown]
  - Diverticulum [Unknown]
  - Bronchitis [Recovering/Resolving]
  - Pneumonia [Recovered/Resolved]
  - Clostridium difficile infection [Recovered/Resolved]
  - Enterocolitis [Recovering/Resolving]
  - Acute sinusitis [Recovering/Resolving]
  - Inflammatory bowel disease [Unknown]
  - Atelectasis [Unknown]
  - Asthma [Unknown]
  - Abscess intestinal [Unknown]
  - Gastrooesophageal reflux disease [Recovered/Resolved]
  - Depression [Unknown]
  - Blood triglycerides increased [Not Recovered/Not Resolved]
  - Anxiety [Recovered/Resolved]
  - Emotional distress [Recovered/Resolved]
